FAERS Safety Report 5700599-9 (Version None)
Quarter: 2008Q2

REPORT INFORMATION
  Report Type: 
  Country: None (occurrence: None)
  Receive Date: 20080410
  Receipt Date: 20080401
  Transmission Date: 20081010
  Serious: Yes (Other)
  Sender: FDA-Public Use
  Company Number: FR-ASTRAZENECA-2008CG00518

PATIENT
  Age: 14308 Day
  Sex: Male

DRUGS (1)
  1. CRESTOR [Suspect]
     Indication: HYPERCHOLESTEROLAEMIA
     Route: 048
     Dates: start: 20080312, end: 20080325

REACTIONS (3)
  - ABDOMINAL PAIN [None]
  - HAEMATURIA [None]
  - RECTAL HAEMORRHAGE [None]
